FAERS Safety Report 9131755 (Version 1)
Quarter: 2013Q1

REPORT INFORMATION
  Report Type: Report from Study
  Country: US (occurrence: US)
  Receive Date: 20130301
  Receipt Date: 20130301
  Transmission Date: 20140127
  Serious: Yes (Hospitalization)
  Sender: FDA-Public Use
  Company Number: US-MYLANLABS-2012S1013344

PATIENT
  Age: 18 Year
  Sex: Female
  Weight: 58.97 kg

DRUGS (2)
  1. AMNESTEEM CAPSULES [Suspect]
     Indication: ACNE
     Route: 048
     Dates: start: 20120322, end: 20120620
  2. LOESTRIN [Concomitant]

REACTIONS (2)
  - Pelvic fracture [Not Recovered/Not Resolved]
  - Hand fracture [Not Recovered/Not Resolved]
